FAERS Safety Report 14172241 (Version 1)
Quarter: 2017Q4

REPORT INFORMATION
  Report Type: Spontaneous
  Country: US (occurrence: US)
  Receive Date: 20171109
  Receipt Date: 20171109
  Transmission Date: 20180321
  Serious: No
  Sender: FDA-Public Use
  Company Number: US-009507513-1710USA014066

PATIENT
  Age: 57 Year
  Sex: Female

DRUGS (2)
  1. LINZESS [Concomitant]
     Active Substance: LINACLOTIDE
     Indication: IRRITABLE BOWEL SYNDROME
  2. ZEPATIER [Suspect]
     Active Substance: ELBASVIR\GRAZOPREVIR
     Indication: HEPATITIS C
     Dosage: 1 TABLET, DAILY
     Route: 048
     Dates: start: 20171018

REACTIONS (1)
  - Irritable bowel syndrome [Unknown]

NARRATIVE: CASE EVENT DATE: 20171019
